FAERS Safety Report 6039975-6 (Version None)
Quarter: 2009Q1

REPORT INFORMATION
  Report Type: 
  Country: None (occurrence: None)
  Receive Date: 20090116
  Receipt Date: 20071105
  Transmission Date: 20090719
  Serious: No
  Sender: FDA-Public Use
  Company Number: US-BRISTOL-MYERS SQUIBB COMPANY-13971841

PATIENT
  Age: 17 Year
  Sex: Male

DRUGS (4)
  1. ABILIFY [Suspect]
     Indication: BIPOLAR DISORDER
  2. RISPERDAL [Concomitant]
  3. DEPAKOTE [Concomitant]
  4. CONCERTA [Concomitant]

REACTIONS (2)
  - AGGRESSION [None]
  - DEPRESSION [None]
